FAERS Safety Report 7271487-4 (Version None)
Quarter: 2011Q1

REPORT INFORMATION
  Report Type: 
  Country: None (occurrence: None)
  Receive Date: 20110128
  Receipt Date: 20110128
  Transmission Date: 20110831
  Serious: Yes (Disabling)
  Sender: FDA-Public Use
  Company Number: None

PATIENT
  Sex: Female
  Weight: 55.7924 kg

DRUGS (2)
  1. ZARAH [Suspect]
  2. DROSPERINONE/ETHINYL ESTRADIOL [Suspect]

REACTIONS (1)
  - METRORRHAGIA [None]
